FAERS Safety Report 21407211 (Version 1)
Quarter: 2022Q4

REPORT INFORMATION
  Report Type: Spontaneous
  Country: US (occurrence: US)
  Receive Date: 20221004
  Receipt Date: 20221004
  Transmission Date: 20230112
  Serious: No
  Sender: FDA-Public Use
  Company Number: US-BEH-2022150180

PATIENT
  Age: 57 Year
  Sex: Female

DRUGS (12)
  1. HIZENTRA [Suspect]
     Active Substance: HUMAN IMMUNOGLOBULIN G
     Indication: Hypogammaglobulinaemia
     Dosage: 4 GRAM, QW
     Route: 058
     Dates: start: 20200326
  2. AMILORIDE [Concomitant]
     Active Substance: AMILORIDE
  3. CYMBALTA [Concomitant]
     Active Substance: DULOXETINE HYDROCHLORIDE
  4. LEUCOVORIN CALCIUM [Concomitant]
     Active Substance: LEUCOVORIN CALCIUM
  5. LEVOTHYROXINE [Concomitant]
     Active Substance: LEVOTHYROXINE
  6. METHOTREXATE [Concomitant]
     Active Substance: METHOTREXATE
  7. FOLIC ACID\IRON\MINERALS\VITAMINS [Concomitant]
     Active Substance: FOLIC ACID\IRON\MINERALS\VITAMINS
     Dosage: 1 DOSAGE FORM, QD
  8. PREMARIN [Concomitant]
     Active Substance: ESTROGENS, CONJUGATED
  9. PROMETHAZINE [Concomitant]
     Active Substance: PROMETHAZINE HYDROCHLORIDE
  10. RAYOS [Concomitant]
     Active Substance: PREDNISONE
  11. SIMVASTATIN [Concomitant]
     Active Substance: SIMVASTATIN
  12. ZYRTEC [Concomitant]
     Active Substance: CETIRIZINE HYDROCHLORIDE

REACTIONS (1)
  - Vomiting [Not Recovered/Not Resolved]

NARRATIVE: CASE EVENT DATE: 20220917
